FAERS Safety Report 6428504-0 (Version None)
Quarter: 2009Q4

REPORT INFORMATION
  Report Type: 
  Country: None (occurrence: None)
  Receive Date: 20091104
  Receipt Date: 20091104
  Transmission Date: 20100525
  Serious: No
  Sender: FDA-Public Use
  Company Number: None

PATIENT
  Age: 74 Year
  Sex: Male

DRUGS (1)
  1. ERLOTINIB [Suspect]
     Indication: BLADDER CANCER
     Dosage: 150 MG EVERYDAY PO
     Route: 048
     Dates: start: 20080522, end: 20081104

REACTIONS (2)
  - HEPATIC ENZYME INCREASED [None]
  - HYPERBILIRUBINAEMIA [None]
